FAERS Safety Report 4716615-7 (Version None)
Quarter: 2005Q3

REPORT INFORMATION
  Report Type: 
  Country: None (occurrence: None)
  Receive Date: 20050718
  Receipt Date: 20050708
  Transmission Date: 20060218
  Serious: Yes (Other)
  Sender: FDA-Public Use
  Company Number: 2005AP000540

PATIENT
  Age: 24 Year
  Sex: Male

DRUGS (3)
  1. PAROXETINE HYDROCHLORIDE [Suspect]
     Indication: DEPRESSION
     Dosage: 60 MG; PM; UNKNOWN
     Dates: start: 20030201
  2. OLANZAPINE [Concomitant]
  3. SERTRALINE HCL [Concomitant]

REACTIONS (1)
  - NARCOLEPSY [None]
